FAERS Safety Report 20712415 (Version 3)
Quarter: 2022Q2

REPORT INFORMATION
  Report Type: Report from Study
  Country: CN (occurrence: CN)
  Receive Date: 20220415
  Receipt Date: 20220519
  Transmission Date: 20220721
  Serious: Yes (Hospitalization, Other)
  Sender: FDA-Public Use
  Company Number: CN-BRISTOL-MYERS SQUIBB COMPANY-BMS-2022-019519

PATIENT
  Age: 68 Year
  Sex: Male
  Weight: 71 kg

DRUGS (3)
  1. CARBOPLATIN [Suspect]
     Active Substance: CARBOPLATIN
     Indication: Non-small cell lung cancer
     Dosage: MOST RECENT DOSE ON 03-NOV-2021
     Route: 065
     Dates: start: 20210903
  2. PACLITAXEL [Suspect]
     Active Substance: PACLITAXEL
     Indication: Non-small cell lung cancer
     Dosage: MOST RECENT DOSE ON 03-NOV-2021 (348 MG)
     Route: 065
     Dates: start: 20210903
  3. METHYLCOBALAMIN [Concomitant]
     Active Substance: METHYLCOBALAMIN
     Indication: Product used for unknown indication
     Dosage: 1 DOSAGE FORM = 1 UNIT NOS
     Route: 048
     Dates: start: 20211014

REACTIONS (6)
  - Pneumocystis jirovecii pneumonia [Recovered/Resolved]
  - Interstitial lung disease [Recovering/Resolving]
  - Platelet count decreased [Recovered/Resolved]
  - Diabetes mellitus [Recovered/Resolved]
  - Pneumonia viral [Recovered/Resolved]
  - Immune-mediated hypophysitis [Recovered/Resolved]

NARRATIVE: CASE EVENT DATE: 20220131
